FAERS Safety Report 24251796 (Version 3)
Quarter: 2025Q3

REPORT INFORMATION
  Report Type: Report from Study
  Country: US (occurrence: US)
  Receive Date: 20240827
  Receipt Date: 20250730
  Transmission Date: 20251020
  Serious: Yes (Hospitalization, Other)
  Sender: BIOGEN
  Company Number: US-BIOGEN-2024BI01279310

PATIENT
  Sex: Female

DRUGS (1)
  1. VUMERITY [Suspect]
     Active Substance: DIROXIMEL FUMARATE
     Indication: Multiple sclerosis
     Route: 050
     Dates: start: 20240531

REACTIONS (10)
  - Multiple sclerosis [Unknown]
  - Meningioma [Unknown]
  - Osteomyelitis [Unknown]
  - Tooth infection [Unknown]
  - Anaesthetic complication [Unknown]
  - Gingivitis [Unknown]
  - Stress [Unknown]
  - Anxiety [Unknown]
  - Pain [Unknown]
  - Hyperacusis [Unknown]
